FAERS Safety Report 8825700 (Version 2)
Quarter: 2012Q4

REPORT INFORMATION
  Report Type: 
  Country: RU (occurrence: RU)
  Receive Date: 20121004
  Receipt Date: 20121011
  Transmission Date: 20130627
  Serious: Yes (Other)
  Sender: FDA-Public Use
  Company Number: RU-PFIZER INC-2012244484

PATIENT
  Age: 28 Year
  Sex: Female
  Weight: 44 kg

DRUGS (1)
  1. DOSTINEX [Suspect]
     Indication: LACTATION INHIBITION THERAPY
     Dosage: 0.25 mg, 2x/day, strictly every 12 hours
     Route: 048
     Dates: start: 20120131, end: 20120201

REACTIONS (4)
  - Blood pressure increased [Recovered/Resolved]
  - Vasoconstriction [Recovered/Resolved]
  - Tachycardia [Recovered/Resolved]
  - Tinnitus [Recovering/Resolving]
